FAERS Safety Report 10386215 (Version 2)
Quarter: 2014Q3

REPORT INFORMATION
  Report Type: Report from Study
  Country: CA (occurrence: CA)
  Receive Date: 20140814
  Receipt Date: 20140821
  Transmission Date: 20150326
  Serious: Yes (Death, Other)
  Sender: FDA-Public Use
  Company Number: PHHY2014CA100765

PATIENT
  Age: 47 Year
  Sex: Female

DRUGS (4)
  1. INVEGA SUNSTENNA [Concomitant]
     Dosage: 150 MG EVERY 4 WEEKS
     Route: 030
  2. WELLBUTRIN [Concomitant]
     Active Substance: BUPROPION HYDROCHLORIDE
     Dosage: 150 MG, QD
  3. CLOZARIL [Suspect]
     Active Substance: CLOZAPINE
     Indication: SCHIZOPHRENIA
     Dosage: 250 MG DAILY
     Route: 048
     Dates: start: 20111011
  4. OXYNEO [Concomitant]
     Active Substance: OXYCODONE
     Dosage: 60 MG, BID

REACTIONS (5)
  - Deep vein thrombosis [Fatal]
  - Accidental overdose [Unknown]
  - Pulmonary embolism [Fatal]
  - Dyspnoea [Unknown]
  - Malaise [Unknown]

NARRATIVE: CASE EVENT DATE: 20140605
